FAERS Safety Report 4425146-3 (Version None)
Quarter: 2004Q3

REPORT INFORMATION
  Report Type: 
  Country: None (occurrence: None)
  Receive Date: 20040813
  Receipt Date: 20040809
  Transmission Date: 20050211
  Serious: No
  Sender: FDA-Public Use
  Company Number: US-JNJFOC-20040505807

PATIENT
  Sex: Female
  Weight: 65.77 kg

DRUGS (6)
  1. RISPERDAL [Suspect]
     Indication: HALLUCINATION
     Route: 049
     Dates: start: 20040402
  2. RISPERDAL [Suspect]
     Indication: DEPRESSION
     Route: 049
     Dates: start: 20040402
  3. RISPERDAL [Suspect]
     Route: 049
     Dates: start: 20040402
  4. RISPERDAL [Suspect]
     Indication: DELUSION
     Route: 049
     Dates: start: 20040402
  5. RISPERDAL [Suspect]
     Route: 049
     Dates: start: 20040402
  6. ZOLOFT [Concomitant]
     Indication: DEPRESSION
     Route: 049

REACTIONS (1)
  - DRUG EXPOSURE DURING PREGNANCY [None]
